FAERS Safety Report 10042931 (Version 2)
Quarter: 2014Q2

REPORT INFORMATION
  Report Type: Spontaneous
  Country: IT (occurrence: IT)
  Receive Date: 20140328
  Receipt Date: 20140403
  Transmission Date: 20141212
  Serious: Yes (Other)
  Sender: FDA-Public Use
  Company Number: IT-ASTRAZENECA-2014SE20461

PATIENT
  Age: 24062 Day
  Sex: Male
  Weight: 82 kg

DRUGS (9)
  1. CAPRELSA [Suspect]
     Indication: MEDULLARY THYROID CANCER
     Route: 048
     Dates: start: 20140128, end: 20140317
  2. CAPRELSA [Suspect]
     Indication: MEDULLARY THYROID CANCER
     Route: 048
  3. METFORMIN [Suspect]
     Indication: DIABETES MELLITUS
     Route: 065
     Dates: end: 20140317
  4. TIROSINT [Concomitant]
     Dosage: 150
  5. LANTUS [Concomitant]
  6. TRIATEC [Concomitant]
  7. GLIBOMET [Concomitant]
     Dosage: 400+5
  8. GLUCOBAY [Concomitant]
     Dosage: 50
  9. IPSTYL [Concomitant]

REACTIONS (2)
  - Blood creatinine increased [Recovering/Resolving]
  - Renal failure [Recovering/Resolving]
